FAERS Safety Report 6504008-1 (Version None)
Quarter: 2009Q4

REPORT INFORMATION
  Report Type: 
  Country: None (occurrence: None)
  Receive Date: 20091217
  Receipt Date: 20091207
  Transmission Date: 20100525
  Serious: Yes (Hospitalization)
  Sender: FDA-Public Use
  Company Number: FR-PFIZER INC-2009286856

PATIENT
  Age: 74 Year
  Sex: Female

DRUGS (10)
  1. CAMPTOSAR [Suspect]
     Indication: COLON CANCER
     Dosage: UNK, COURSE 1
     Route: 042
     Dates: start: 20081030, end: 20081217
  2. CAMPTOSAR [Suspect]
     Dosage: 255.6 MG, COURSE 2
     Route: 042
     Dates: start: 20090604, end: 20090604
  3. SOLU-MEDROL [Suspect]
     Dosage: 1 DF, 1X/DAY
     Route: 042
     Dates: start: 20090604, end: 20090604
  4. FLUOROURACIL [Suspect]
     Indication: COLON CANCER
     Dosage: UNK, COURSE 1
     Route: 042
     Dates: start: 20081030, end: 20081217
  5. FLUOROURACIL [Suspect]
     Dosage: 3.4 G, 2X/DAY, COURSE 2
     Route: 042
     Dates: start: 20090604, end: 20090604
  6. FLUOROURACIL [Suspect]
     Dosage: 568 MG, 1X/DAY, COURSE 2
     Route: 042
     Dates: start: 20090604, end: 20090604
  7. ATROPINE [Suspect]
     Dosage: 0.25 MG
     Route: 042
     Dates: start: 20090604, end: 20090604
  8. CALCIUM LEVOFOLINATE [Suspect]
     Indication: COLON CANCER
     Dosage: UNK, COURSE 1
     Route: 042
     Dates: start: 20081030, end: 20081217
  9. CALCIUM LEVOFOLINATE [Suspect]
     Dosage: 284 MG DAILY, COURSE 2
     Route: 042
     Dates: start: 20090604, end: 20090604
  10. ZOPHREN [Suspect]
     Dosage: 1 DF, 1X/DAY
     Route: 042
     Dates: start: 20090604, end: 20090604

REACTIONS (1)
  - RASH [None]
